FAERS Safety Report 22624098 (Version 2)
Quarter: 2023Q2

REPORT INFORMATION
  Report Type: Spontaneous
  Country: JP (occurrence: JP)
  Receive Date: 20230621
  Receipt Date: 20230622
  Transmission Date: 20230722
  Serious: Yes (Death, Other)
  Sender: FDA-Public Use
  Company Number: JP-PFIZER INC-PV202300105908

PATIENT
  Age: 68 Year
  Sex: Female
  Weight: 63 kg

DRUGS (8)
  1. EPIRUBICIN HYDROCHLORIDE [Suspect]
     Active Substance: EPIRUBICIN HYDROCHLORIDE
     Indication: Hepatocellular carcinoma
     Dosage: 7.5 MG
     Route: 013
     Dates: start: 20000911
  2. EPIRUBICIN HYDROCHLORIDE [Suspect]
     Active Substance: EPIRUBICIN HYDROCHLORIDE
     Indication: Cholangiocarcinoma
     Dosage: 2.5 MG
     Route: 013
  3. EPIRUBICIN HYDROCHLORIDE [Suspect]
     Active Substance: EPIRUBICIN HYDROCHLORIDE
     Dosage: 20 MG
     Route: 013
     Dates: start: 20001006
  4. EPIRUBICIN HYDROCHLORIDE [Suspect]
     Active Substance: EPIRUBICIN HYDROCHLORIDE
     Dosage: 10 MG
     Route: 013
  5. LIPIODOL [Suspect]
     Active Substance: ETHIODIZED OIL
     Indication: Hepatocellular carcinoma
     Dosage: 6 ML FROM A6 FOR THE MASS OF S6
     Route: 013
     Dates: start: 20000911
  6. LIPIODOL [Suspect]
     Active Substance: ETHIODIZED OIL
     Indication: Cholangiocarcinoma
     Dosage: 2 ML A4 AND A8-B WAS PERFORMED FOR THE MASS OF S4 TO S8
     Route: 013
  7. LIPIODOL [Suspect]
     Active Substance: ETHIODIZED OIL
     Dosage: 3 ML, INTO A8-A
     Route: 013
     Dates: start: 20001006
  8. LIPIODOL [Suspect]
     Active Substance: ETHIODIZED OIL
     Dosage: 1.5 ML, INTO A8-B AND A6
     Route: 013

REACTIONS (2)
  - Neoplasm progression [Fatal]
  - Transdifferentiation of neoplasm [Fatal]
